FAERS Safety Report 14902575 (Version 1)
Quarter: 2018Q2

REPORT INFORMATION
  Report Type: Spontaneous
  Country: US (occurrence: US)
  Receive Date: 20180516
  Receipt Date: 20180516
  Transmission Date: 20180711
  Serious: No
  Sender: FDA-Public Use
  Company Number: US-SA-2017SA082723

PATIENT
  Age: 68 Year
  Sex: Female

DRUGS (4)
  1. LANTUS SOLOSTAR [Suspect]
     Active Substance: INSULIN GLARGINE
     Indication: TYPE 2 DIABETES MELLITUS
     Dosage: 12 UNITS IN THE MORNING AND 6 UNITS AT NIGHT
     Route: 051
  2. APIDRA SOLOSTAR [Concomitant]
     Active Substance: INSULIN GLULISINE
  3. SOLOSTAR [Concomitant]
     Active Substance: DEVICE
  4. SOLOSTAR [Concomitant]
     Active Substance: DEVICE

REACTIONS (3)
  - Drug effect decreased [Unknown]
  - Blood glucose increased [Unknown]
  - Product use issue [Unknown]
